FAERS Safety Report 8529524-2 (Version None)
Quarter: 2012Q3

REPORT INFORMATION
  Report Type: 
  Country: None (occurrence: None)
  Receive Date: 20120723
  Receipt Date: 20120713
  Transmission Date: 20120928
  Serious: Yes (Hospitalization)
  Sender: FDA-Public Use
  Company Number: US-JNJFOC-20120707216

PATIENT
  Sex: Male

DRUGS (2)
  1. WARFARIN SODIUM [Concomitant]
     Route: 065
  2. REMICADE [Suspect]
     Indication: PRODUCT USED FOR UNKNOWN INDICATION
     Route: 042
     Dates: start: 20120701

REACTIONS (2)
  - INTERNATIONAL NORMALISED RATIO DECREASED [None]
  - HOSPITALISATION [None]
